FAERS Safety Report 7756416-9 (Version None)
Quarter: 2011Q3

REPORT INFORMATION
  Report Type: 
  Country: None (occurrence: None)
  Receive Date: 20110916
  Receipt Date: 20110903
  Transmission Date: 20111222
  Serious: No
  Sender: FDA-Public Use
  Company Number: US-B.I. PHARMACEUTICALS,INC./RIDGEFIELD-2011-BP-21466BP

PATIENT
  Age: 50 Year
  Sex: Male

DRUGS (3)
  1. SPIRIVA [Suspect]
     Indication: ASTHMA
     Dosage: 18 MCG
     Route: 055
     Dates: start: 20110801
  2. SYMBICORT [Concomitant]
     Indication: ASTHMA
     Dates: start: 20110801
  3. PROAIR HFA [Concomitant]
     Indication: ASTHMA
     Dates: start: 20110801

REACTIONS (3)
  - WHEEZING [None]
  - DIZZINESS [None]
  - DRY MOUTH [None]
